FAERS Safety Report 7414919-0 (Version None)
Quarter: 2011Q2

REPORT INFORMATION
  Report Type: 
  Country: None (occurrence: None)
  Receive Date: 20110414
  Receipt Date: 20101029
  Transmission Date: 20111010
  Serious: Yes (Other)
  Sender: FDA-Public Use
  Company Number: US-BAYER-201028407NA

PATIENT
  Age: 15 Year
  Sex: Female
  Weight: 46.712 kg

DRUGS (15)
  1. YAZ [Suspect]
  2. LORATADINE [Concomitant]
     Dosage: UNK
     Dates: start: 20090101
  3. YAZ [Suspect]
     Indication: PREMENSTRUAL SYNDROME
     Route: 048
     Dates: start: 20081107, end: 20091130
  4. PROZAC [Concomitant]
     Dosage: UNK
     Dates: start: 20080101
  5. SILDEC [Concomitant]
     Dosage: UNK
     Dates: start: 20090101
  6. FLUOXETINE [Concomitant]
     Dosage: UNK
     Dates: start: 20090101
  7. ZEGERID [Concomitant]
     Dosage: UNK
     Dates: start: 20090101
  8. PROMETHAZINE [Concomitant]
     Dosage: UNK
     Dates: start: 20090101
  9. AMOXYCILLIN [Concomitant]
     Dosage: UNK
     Dates: start: 20090101
  10. TRAMADOL [Concomitant]
     Dosage: UNK
     Dates: start: 20090101
  11. NAPROXEN [Concomitant]
     Dosage: UNK
     Dates: start: 20090101
  12. AZITHROMYCIN [Concomitant]
     Dosage: UNK
     Dates: start: 20090101
  13. HYDROXYZINE [Concomitant]
  14. ALDEX G [Concomitant]
     Dosage: UNK
     Dates: start: 20090101
  15. SINGULAIR [Concomitant]

REACTIONS (2)
  - GALLBLADDER DISORDER [None]
  - CHOLECYSTITIS CHRONIC [None]
